FAERS Safety Report 16179239 (Version 1)
Quarter: 2019Q2

REPORT INFORMATION
  Report Type: Spontaneous
  Country: US (occurrence: US)
  Receive Date: 20190409
  Receipt Date: 20190409
  Transmission Date: 20190711
  Serious: Yes (Hospitalization)
  Sender: FDA-Public Use
  Company Number: None

PATIENT
  Age: 59 Year
  Sex: Female

DRUGS (1)
  1. DICLOFENAC GEL [Suspect]
     Active Substance: DICLOFENAC
     Indication: PAIN IN EXTREMITY

REACTIONS (6)
  - Rash [None]
  - Peripheral swelling [None]
  - Dyspepsia [None]
  - Pyrexia [None]
  - Vasculitis [None]
  - Nausea [None]

NARRATIVE: CASE EVENT DATE: 20190206
